FAERS Safety Report 7052074-X (Version None)
Quarter: 2010Q4

REPORT INFORMATION
  Report Type: 
  Country: None (occurrence: None)
  Receive Date: 20101019
  Receipt Date: 20101018
  Transmission Date: 20110411
  Serious: Yes (Death)
  Sender: FDA-Public Use
  Company Number: US-JNJFOC-20080101973

PATIENT
  Age: 26 Year
  Sex: Male

DRUGS (7)
  1. IBUPROFEN [Suspect]
     Indication: SUICIDE ATTEMPT
     Route: 048
  2. LAMOTRIGINE [Suspect]
     Indication: SUICIDE ATTEMPT
     Route: 048
  3. ESCITALOPRAM [Suspect]
     Indication: SUICIDE ATTEMPT
     Route: 048
  4. ALPRAZOLAM [Suspect]
     Indication: SUICIDE ATTEMPT
     Route: 048
  5. RAMELTEON [Suspect]
     Indication: SUICIDE ATTEMPT
     Route: 048
  6. PYRAZOLOPYRIMIDINE [Suspect]
     Indication: SUICIDE ATTEMPT
     Route: 048
  7. ZOLPIDEM [Suspect]
     Indication: SUICIDE ATTEMPT
     Route: 048

REACTIONS (1)
  - DRUG TOXICITY [None]
